FAERS Safety Report 8174356-0 (Version None)
Quarter: 2012Q1

REPORT INFORMATION
  Report Type: 
  Country: None (occurrence: None)
  Receive Date: 20120229
  Receipt Date: 20120221
  Transmission Date: 20120608
  Serious: Yes (Other)
  Sender: FDA-Public Use
  Company Number: US-BAYER-2011-115726

PATIENT
  Age: 23 Year
  Sex: Female
  Weight: 72 kg

DRUGS (5)
  1. PEPCID [Concomitant]
     Dosage: 40 MG/24HR, UNK
  2. ALLEGRA [Concomitant]
  3. IBUPROFEN (ADVIL) [Concomitant]
     Dosage: UNK
     Dates: start: 20030101
  4. YAZ [Suspect]
     Indication: CONTRACEPTION
     Dosage: UNK
     Dates: start: 20080101, end: 20100101
  5. LEVOTHYROXINE SODIUM [Concomitant]
     Indication: HYPOTHYROIDISM
     Dosage: 50 ?G, QD
     Dates: start: 20081001

REACTIONS (5)
  - CHOLECYSTECTOMY [None]
  - EMOTIONAL DISTRESS [None]
  - CHOLELITHIASIS [None]
  - CHOLECYSTITIS CHRONIC [None]
  - DYSPEPSIA [None]
